FAERS Safety Report 14895727 (Version 2)
Quarter: 2018Q2

REPORT INFORMATION
  Report Type: Spontaneous
  Country: US (occurrence: US)
  Receive Date: 20180515
  Receipt Date: 20180530
  Transmission Date: 20180711
  Serious: Yes (Hospitalization)
  Sender: FDA-Public Use
  Company Number: PHEH2018US017806

PATIENT
  Age: 30 Year
  Sex: Female
  Weight: 63.49 kg

DRUGS (6)
  1. LUVOX [Concomitant]
     Active Substance: FLUVOXAMINE MALEATE
     Indication: PRODUCT USED FOR UNKNOWN INDICATION
     Dosage: UNK
     Route: 065
  2. HUMIRA [Suspect]
     Active Substance: ADALIMUMAB
     Dosage: 40 MG, QW (1 IN 2 WEEKS)
     Route: 058
     Dates: start: 201802
  3. TIZANIDINE. [Concomitant]
     Active Substance: TIZANIDINE
     Indication: PAIN
     Dosage: UNK
     Route: 065
  4. HUMIRA [Suspect]
     Active Substance: ADALIMUMAB
     Indication: PSORIASIS
     Dosage: 40 MG, QW (1 IN 2 WEEKS)
     Route: 058
     Dates: start: 2016, end: 201702
  5. COSENTYX [Suspect]
     Active Substance: SECUKINUMAB
     Indication: PSORIASIS
     Dosage: UNK
     Route: 065
     Dates: start: 201702, end: 201711
  6. NEURONTIN [Concomitant]
     Active Substance: GABAPENTIN
     Indication: PRODUCT USED FOR UNKNOWN INDICATION
     Dosage: UNK
     Route: 065

REACTIONS (14)
  - Abdominal pain upper [Unknown]
  - Migraine [Not Recovered/Not Resolved]
  - Colitis ulcerative [Recovering/Resolving]
  - Vomiting [Recovered/Resolved]
  - Sepsis [Recovered/Resolved]
  - Weight increased [Unknown]
  - Asthenia [Recovered/Resolved]
  - Bradyphrenia [Not Recovered/Not Resolved]
  - Feeding disorder [Recovered/Resolved]
  - Diarrhoea [Unknown]
  - Rash [Recovered/Resolved]
  - Drug effect decreased [Unknown]
  - Dysarthria [Not Recovered/Not Resolved]
  - Rash [Unknown]

NARRATIVE: CASE EVENT DATE: 201707
